FAERS Safety Report 6048489-9 (Version None)
Quarter: 2009Q1

REPORT INFORMATION
  Report Type: 
  Country: None (occurrence: None)
  Receive Date: 20090123
  Receipt Date: 20090119
  Transmission Date: 20090719
  Serious: Yes (Life-Threatening)
  Sender: FDA-Public Use
  Company Number: B0544235A

PATIENT
  Age: 40 Year
  Sex: Male

DRUGS (4)
  1. TRACRIUM [Suspect]
     Route: 042
     Dates: start: 20081004
  2. DIPRIVAN [Suspect]
     Dosage: 150MG PER DAY
     Route: 042
     Dates: start: 20081004
  3. SUFENTA PRESERVATIVE FREE [Suspect]
     Dosage: 10MCG PER DAY
     Route: 042
     Dates: start: 20081004
  4. CEFACIDAL [Suspect]
     Indication: ANTIBIOTIC PROPHYLAXIS
     Dosage: 2G PER DAY
     Route: 042
     Dates: start: 20081004

REACTIONS (13)
  - AGITATION [None]
  - ANAPHYLACTIC SHOCK [None]
  - BLOOD PRESSURE IMMEASURABLE [None]
  - CARDIAC ARREST [None]
  - CARDIAC ENZYMES INCREASED [None]
  - GENERALISED ERYTHEMA [None]
  - HEPATOCELLULAR INJURY [None]
  - HYPOKALAEMIA [None]
  - INFLAMMATION [None]
  - MOTOR DYSFUNCTION [None]
  - NERVOUS SYSTEM DISORDER [None]
  - RENAL IMPAIRMENT [None]
  - TACHYCARDIA [None]
